FAERS Safety Report 9150061 (Version 1)
Quarter: 2013Q1

REPORT INFORMATION
  Report Type: Spontaneous
  Country: US (occurrence: None)
  Receive Date: 20130304
  Receipt Date: 20130304
  Transmission Date: 20140127
  Serious: No
  Sender: FDA-Public Use
  Company Number: None

PATIENT
  Age: 60 Year
  Sex: Female
  Weight: 58.97 kg

DRUGS (1)
  1. SUDOGEST [Suspect]
     Dosage: 1 TABLET ONCE PO
     Route: 048
     Dates: start: 20130228, end: 20130228

REACTIONS (3)
  - Fungal infection [None]
  - Dysuria [None]
  - Skin exfoliation [None]
